FAERS Safety Report 17392701 (Version 1)
Quarter: 2020Q1

REPORT INFORMATION
  Report Type: Spontaneous
  Country: MY (occurrence: MY)
  Receive Date: 20200207
  Receipt Date: 20200207
  Transmission Date: 20200409
  Serious: Yes (Congenital Anomaly, Other)
  Sender: FDA-Public Use
  Company Number: MY-VISTAPHARM, INC.-VER202001-000221

PATIENT
  Age: 3 Month
  Sex: Female
  Weight: 5.1 kg

DRUGS (1)
  1. VALPROIC ACID. [Suspect]
     Active Substance: VALPROIC ACID
     Dosage: UNKNOWN
     Route: 064

REACTIONS (5)
  - Foetal anticonvulsant syndrome [Not Recovered/Not Resolved]
  - Pectus excavatum [Not Recovered/Not Resolved]
  - Foetal exposure during pregnancy [Unknown]
  - Persistent left superior vena cava [Not Recovered/Not Resolved]
  - Limb malformation [Not Recovered/Not Resolved]
